FAERS Safety Report 5031017-4 (Version None)
Quarter: 2006Q2

REPORT INFORMATION
  Report Type: 
  Country: None (occurrence: None)
  Receive Date: 20060621
  Receipt Date: 20060501
  Transmission Date: 20061013
  Serious: No
  Sender: FDA-Public Use
  Company Number: US-GLAXOSMITHKLINE-A0603863A

PATIENT
  Age: 72 Year
  Sex: Female

DRUGS (8)
  1. FLOVENT [Suspect]
     Dosage: 1PUFF TWICE PER DAY
     Route: 055
     Dates: start: 20060421, end: 20060423
  2. SYNTHROID [Concomitant]
  3. MIACALCIN [Concomitant]
  4. COREG [Concomitant]
  5. COZAAR [Concomitant]
  6. MEVACOR [Concomitant]
  7. HYDROCHLOROTHIAZIDE [Concomitant]
  8. PROTONIX [Concomitant]

REACTIONS (2)
  - GLOSSODYNIA [None]
  - TONGUE DISCOLOURATION [None]
